FAERS Safety Report 23803150 (Version 2)
Quarter: 2024Q2

REPORT INFORMATION
  Report Type: Spontaneous
  Country: US (occurrence: None)
  Receive Date: 20240501
  Receipt Date: 20240503
  Transmission Date: 20240716
  Serious: Yes (Other)
  Sender: FDA-Public Use
  Company Number: US-ROCHE-3549614

PATIENT
  Sex: Female

DRUGS (1)
  1. VABYSMO [Suspect]
     Active Substance: FARICIMAB\FARICIMAB-SVOA
     Indication: Retinal neovascularisation
     Dosage: ON JUL/2023, TOOK THE SECOND INJECTION OF FARICIMAB. ON 03/AUG/2023, TOOK THE 3RD INJECTION OF FARIC
     Route: 050
     Dates: start: 202306

REACTIONS (9)
  - Blindness unilateral [Unknown]
  - Vitreous floaters [Unknown]
  - Ocular hyperaemia [Unknown]
  - Intraocular pressure decreased [Unknown]
  - Retinal tear [Unknown]
  - Cataract [Unknown]
  - Injury corneal [Unknown]
  - Intraocular pressure increased [Unknown]
  - Off label use [Unknown]

NARRATIVE: CASE EVENT DATE: 20230601
